FAERS Safety Report 6649297-8 (Version None)
Quarter: 2010Q1

REPORT INFORMATION
  Report Type: 
  Country: None (occurrence: None)
  Receive Date: 20100322
  Receipt Date: 20100309
  Transmission Date: 20100710
  Serious: Yes (Hospitalization)
  Sender: FDA-Public Use
  Company Number: 230002J10USA

PATIENT
  Age: 44 Year
  Sex: Female

DRUGS (6)
  1. REBIF [Suspect]
     Indication: MULTIPLE SCLEROSIS
     Dosage: 44 MCG, 3 IN 1 WEEKS, SUBCUTANEOUS
     Route: 058
     Dates: start: 20081209
  2. MULTI-VITAMINS [Concomitant]
  3. PRILOSEC [Concomitant]
  4. OSCAL D(OSCAL/01746701/) [Concomitant]
  5. BENADRYL (DIPHENHYDROCHLORIDE) [Concomitant]
  6. NASONEX [Concomitant]

REACTIONS (6)
  - BLADDER PROLAPSE [None]
  - OSTEOPENIA [None]
  - OSTEOPOROSIS [None]
  - POST PROCEDURAL HAEMORRHAGE [None]
  - VAGINAL HAEMORRHAGE [None]
  - VAGINAL PROLAPSE [None]
